FAERS Safety Report 18691686 (Version 1)
Quarter: 2021Q1

REPORT INFORMATION
  Report Type: Spontaneous
  Country: IT (occurrence: IT)
  Receive Date: 20210102
  Receipt Date: 20210102
  Transmission Date: 20210419
  Serious: Yes (Other)
  Sender: FDA-Public Use
  Company Number: IT-AUROBINDO-AUR-APL-2020-063750

PATIENT
  Age: 67 Year
  Sex: Female

DRUGS (4)
  1. PARACETAMOL [Suspect]
     Active Substance: ACETAMINOPHEN
     Indication: SURGERY
     Dosage: 1000 MILLIGRAM, ONCE A DAY
     Route: 042
     Dates: start: 20201216, end: 20201216
  2. REQUIP [Concomitant]
     Active Substance: ROPINIROLE HYDROCHLORIDE
     Indication: PRODUCT USED FOR UNKNOWN INDICATION
     Dosage: 8 MILLIGRAM
     Route: 065
  3. SERTRALINE [Concomitant]
     Active Substance: SERTRALINE HYDROCHLORIDE
     Indication: PRODUCT USED FOR UNKNOWN INDICATION
     Dosage: 50 MILLIGRAM
     Route: 048
  4. CEFTRIAXONE DISODIUM [Suspect]
     Active Substance: CEFTRIAXONE
     Indication: SURGERY
     Dosage: 2 GRAM, ONCE A DAY
     Route: 042
     Dates: start: 20201216

REACTIONS (3)
  - Angioedema [Recovered/Resolved]
  - Conjunctival hyperaemia [Recovered/Resolved]
  - Urticaria [Recovered/Resolved]

NARRATIVE: CASE EVENT DATE: 20201216
